FAERS Safety Report 6046037-0 (Version None)
Quarter: 2009Q1

REPORT INFORMATION
  Report Type: 
  Country: None (occurrence: None)
  Receive Date: 20090116
  Receipt Date: 20090105
  Transmission Date: 20090719
  Serious: Yes (Hospitalization)
  Sender: FDA-Public Use
  Company Number: KV200900032

PATIENT
  Age: 59 Year
  Sex: Male
  Weight: 90.7 kg

DRUGS (4)
  1. MORPHINE SULFATE [Suspect]
     Indication: BACK PAIN
     Dosage: 30 MG, PRN, ORAL
     Route: 048
     Dates: start: 20081001, end: 20081101
  2. ATENOLOL [Concomitant]
  3. ZOCOR [Concomitant]
  4. CAFERGOT [Concomitant]

REACTIONS (4)
  - LOSS OF CONSCIOUSNESS [None]
  - MYOCARDIAL INFARCTION [None]
  - OVERDOSE [None]
  - PRODUCT QUALITY ISSUE [None]
